FAERS Safety Report 7238777-2 (Version None)
Quarter: 2011Q1

REPORT INFORMATION
  Report Type: 
  Country: None (occurrence: None)
  Receive Date: 20110121
  Receipt Date: 20110114
  Transmission Date: 20110831
  Serious: Yes (Other)
  Sender: FDA-Public Use
  Company Number: BR-PFIZER INC-2010159195

PATIENT
  Age: 62 Year
  Sex: Female

DRUGS (1)
  1. XALATAN [Suspect]
     Indication: GLAUCOMA
     Dosage: 3 UG, 2X/DAY (1 DROP IN EACH EYE 2X/DAY)
     Route: 047
     Dates: start: 20090207, end: 20100601

REACTIONS (3)
  - HYPERSENSITIVITY [None]
  - EYE IRRITATION [None]
  - OEDEMA MOUTH [None]
